FAERS Safety Report 5173991-1 (Version None)
Quarter: 2006Q4

REPORT INFORMATION
  Report Type: 
  Country: None (occurrence: None)
  Receive Date: 20061214
  Receipt Date: 20061129
  Transmission Date: 20070319
  Serious: Yes (Other)
  Sender: FDA-Public Use
  Company Number: IT-MERCK-0612USA00181

PATIENT
  Age: 36 Year
  Sex: Male

DRUGS (4)
  1. CUPRIMINE [Suspect]
     Indication: HEPATO-LENTICULAR DEGENERATION
     Route: 065
  2. ZINC SULFATE [Concomitant]
     Route: 065
  3. TETRATHIOMOLYBDATE [Suspect]
     Route: 065
  4. TETRATHIOMOLYBDATE [Suspect]
     Route: 065

REACTIONS (5)
  - HEADACHE [None]
  - HEPATO-LENTICULAR DEGENERATION [None]
  - LIVER FUNCTION TEST ABNORMAL [None]
  - NAUSEA [None]
  - VOMITING [None]
